FAERS Safety Report 9354569 (Version 3)
Quarter: 2013Q3

REPORT INFORMATION
  Report Type: Spontaneous
  Country: US (occurrence: US)
  Receive Date: 20130618
  Receipt Date: 20130802
  Transmission Date: 20140515
  Serious: Yes (Life-Threatening, Hospitalization)
  Sender: FDA-Public Use
  Company Number: US-GILEAD-2013-0076053

PATIENT
  Age: 62 Year
  Sex: Female

DRUGS (13)
  1. LETAIRIS [Suspect]
     Indication: PULMONARY HYPERTENSION
     Dosage: 10 MG, QD
     Route: 048
     Dates: start: 20101122
  2. LETAIRIS [Suspect]
     Indication: SCLERODERMA
  3. ADCIRCA [Concomitant]
  4. LOMOTIL [Concomitant]
  5. NASONEX [Concomitant]
  6. TRAZODONE [Concomitant]
  7. ZOLPIDEM [Concomitant]
  8. POTASSIUM CHLORIDE [Concomitant]
  9. PLAQUENIL                          /00072602/ [Concomitant]
  10. LYRICA [Concomitant]
  11. PROAIR                             /00139502/ [Concomitant]
  12. LASIX                              /00032601/ [Concomitant]
  13. TYVASO [Concomitant]

REACTIONS (3)
  - Pneumonia pneumococcal [Recovered/Resolved]
  - Respiratory failure [Recovered/Resolved]
  - Syncope [Unknown]
